FAERS Safety Report 11983176 (Version 1)
Quarter: 2016Q1

REPORT INFORMATION
  Report Type: Report from Study
  Country: US (occurrence: US)
  Receive Date: 20160201
  Receipt Date: 20160201
  Transmission Date: 20160526
  Serious: Yes (Hospitalization)
  Sender: FDA-Public Use
  Company Number: US-JNJFOC-20160114105

PATIENT
  Age: 32 Year
  Sex: Male
  Weight: 110.6 kg

DRUGS (3)
  1. APAP [Suspect]
     Active Substance: ACETAMINOPHEN
     Indication: TOOTHACHE
     Dosage: MORE THAN 15 TABLETS OF 500 MG OF PARACETAMOL OVER A 2 DAY PERIOD
     Route: 048
     Dates: start: 201505
  2. APAP [Suspect]
     Active Substance: ACETAMINOPHEN
     Indication: HEADACHE
     Dosage: MORE THAN 15 TABLETS OF 500 MG OF PARACETAMOL OVER A 2 DAY PERIOD
     Route: 048
     Dates: start: 201505
  3. ETHANOL [Suspect]
     Active Substance: ALCOHOL
     Indication: PRODUCT USED FOR UNKNOWN INDICATION
     Route: 048

REACTIONS (6)
  - Extra dose administered [Recovered/Resolved]
  - Prothrombin time prolonged [Recovered/Resolved]
  - Drug administration error [Recovered/Resolved]
  - Vomiting [Recovered/Resolved]
  - Alanine aminotransferase increased [Recovered/Resolved]
  - Aspartate aminotransferase increased [Recovered/Resolved]

NARRATIVE: CASE EVENT DATE: 201505
